FAERS Safety Report 6124057-5 (Version None)
Quarter: 2009Q1

REPORT INFORMATION
  Report Type: 
  Country: None (occurrence: None)
  Receive Date: 20090319
  Receipt Date: 20090312
  Transmission Date: 20090719
  Serious: Yes (Other)
  Sender: FDA-Public Use
  Company Number: CA-ABBOTT-08P-028-0495214-00

PATIENT
  Sex: Male

DRUGS (15)
  1. LUPRON DEPOT [Suspect]
     Indication: PROSTATE CANCER
     Dates: start: 20061113, end: 20080918
  2. SYMBICORT [Concomitant]
     Indication: DRUG USE FOR UNKNOWN INDICATION
     Route: 055
  3. BETADERM [Concomitant]
     Indication: DRUG USE FOR UNKNOWN INDICATION
     Dosage: APPLIED BID (EAR, ARMPIT, GROIN)
     Route: 061
  4. LIPITOR [Concomitant]
     Indication: DRUG USE FOR UNKNOWN INDICATION
     Dosage: AT NIGHT TIME
     Route: 048
  5. LORAZEPAM [Concomitant]
     Indication: DRUG USE FOR UNKNOWN INDICATION
     Dosage: BID PRN
     Route: 048
  6. BETADERM [Concomitant]
     Indication: PSORIASIS
  7. NORVASC [Concomitant]
     Indication: DRUG USE FOR UNKNOWN INDICATION
     Dosage: EVERY MORNING
     Route: 048
  8. FUROSEMIDE [Concomitant]
     Indication: DRUG USE FOR UNKNOWN INDICATION
     Route: 048
  9. ACCUPRIL [Concomitant]
     Indication: DRUG USE FOR UNKNOWN INDICATION
     Dosage: EVERY MORNING
     Route: 048
  10. SPIRIVA [Concomitant]
     Indication: DRUG USE FOR UNKNOWN INDICATION
     Route: 055
  11. SPIRALACTONE [Concomitant]
     Indication: DRUG USE FOR UNKNOWN INDICATION
     Route: 048
  12. DOVONEX [Concomitant]
     Indication: DRUG USE FOR UNKNOWN INDICATION
     Dosage: APPLY TO LEGS BID
  13. CIPROFLOXACIN HCL [Concomitant]
     Indication: DRUG USE FOR UNKNOWN INDICATION
     Dosage: 0.2 %/1 % DROPS TID IN RIGHT EAR
  14. BACTROBAN [Concomitant]
     Indication: DRUG USE FOR UNKNOWN INDICATION
     Dosage: APPLY TWICE A DAY TO RIGHT EAR
  15. HYDROVAL [Concomitant]
     Indication: DRUG USE FOR UNKNOWN INDICATION
     Dosage: APPLY TWICE A DAY TO GROIN
     Route: 061

REACTIONS (1)
  - URETHRAL STENOSIS [None]
